FAERS Safety Report 6437106-1 (Version None)
Quarter: 2009Q4

REPORT INFORMATION
  Report Type: 
  Country: None (occurrence: None)
  Receive Date: 20091112
  Receipt Date: 20091105
  Transmission Date: 20100525
  Serious: Yes (Death, Hospitalization, Other)
  Sender: FDA-Public Use
  Company Number: PHHO2009PL09822

PATIENT
  Sex: Male
  Weight: 95 kg

DRUGS (6)
  1. AMN107 AMN+CAP [Suspect]
     Indication: CHRONIC MYELOID LEUKAEMIA
     Dosage: 300 MG TWICE DAILY
     Route: 048
     Dates: start: 20080206, end: 20080306
  2. HEPAREGEN [Concomitant]
  3. CHOLESTIL [Concomitant]
  4. TRITACE [Concomitant]
  5. TULIP [Concomitant]
  6. PIRAMIL [Concomitant]

REACTIONS (21)
  - AKINESIA [None]
  - ASTHENIA [None]
  - CARDIAC ARREST [None]
  - CARDIAC MASSAGE [None]
  - CHEST DISCOMFORT [None]
  - CORONARY ARTERY BYPASS [None]
  - CORONARY ARTERY STENOSIS [None]
  - ELECTROCARDIOGRAM Q WAVE ABNORMAL [None]
  - ELECTROCARDIOGRAM ST SEGMENT DEPRESSION [None]
  - FATIGUE [None]
  - HYPOKINESIA [None]
  - INTRA-AORTIC BALLOON PLACEMENT [None]
  - LOSS OF CONSCIOUSNESS [None]
  - MITRAL VALVE INCOMPETENCE [None]
  - MYOCARDIAL INFARCTION [None]
  - MYOCARDIAL ISCHAEMIA [None]
  - PLATELET COUNT ABNORMAL [None]
  - STERNOTOMY [None]
  - THROMBOCYTOPENIA [None]
  - TROPONIN T INCREASED [None]
  - VENTRICULAR FIBRILLATION [None]
